FAERS Safety Report 20447986 (Version 1)
Quarter: 2022Q1

REPORT INFORMATION
  Report Type: Spontaneous
  Country: US (occurrence: US)
  Receive Date: 20220209
  Receipt Date: 20220209
  Transmission Date: 20220424
  Serious: No
  Sender: FDA-Public Use
  Company Number: US-NOVARTISTESTPH-NVSC2022US026647

PATIENT
  Age: 6 Year
  Sex: Female

DRUGS (1)
  1. LUTATHERA [Suspect]
     Active Substance: LUTETIUM OXODOTREOTIDE LU-177
     Indication: Off label use
     Dosage: 37 MBQ, Q2H
     Route: 042
     Dates: start: 20220126, end: 20220126

REACTIONS (1)
  - Off label use [Unknown]
